FAERS Safety Report 11051625 (Version 1)
Quarter: 2015Q2

REPORT INFORMATION
  Report Type: Report from Study
  Country: GB (occurrence: GB)
  Receive Date: 20150421
  Receipt Date: 20150421
  Transmission Date: 20150821
  Serious: Yes (Hospitalization)
  Sender: FDA-Public Use
  Company Number: GB-009507513-1504GBR016950

PATIENT
  Age: 78 Year
  Sex: Male

DRUGS (7)
  1. VORINOSTAT [Suspect]
     Active Substance: VORINOSTAT
     Dosage: 300 MG, CYCLICAL (DAY 1-7 AND DAY 15-21)
     Route: 048
     Dates: start: 20121228, end: 20121228
  2. THALIDOMIDE [Suspect]
     Active Substance: THALIDOMIDE
     Indication: PLASMA CELL MYELOMA
     Dosage: 50 MG, CYCLICAL (DAYS 1-28)
     Route: 048
     Dates: start: 20120628
  3. LENALIDOMIDE [Suspect]
     Active Substance: LENALIDOMIDE
     Indication: PLASMA CELL MYELOMA
     Dosage: 10 MG, CYCLICAL (DAYS 1-21)
     Route: 048
     Dates: start: 20121212
  4. LENALIDOMIDE [Suspect]
     Active Substance: LENALIDOMIDE
     Dosage: 10 MG, CYCLICAL (DAYS 1-21)
     Route: 048
     Dates: start: 20121228, end: 20121228
  5. DEXAMETHASONE. [Suspect]
     Active Substance: DEXAMETHASONE
     Indication: PLASMA CELL MYELOMA
     Dosage: 20 MG, CYCLICAL (DAYS 1,2,3,4,8,15,16,17,18)
     Route: 048
     Dates: start: 20120628
  6. CYCLOPHOSPHAMIDE. [Suspect]
     Active Substance: CYCLOPHOSPHAMIDE
     Indication: PLASMA CELL MYELOMA
     Dosage: 500 MG, QW
     Route: 048
     Dates: start: 20120628
  7. VORINOSTAT [Suspect]
     Active Substance: VORINOSTAT
     Indication: PLASMA CELL MYELOMA
     Dosage: 300 MG, CYCLICAL (DAY 1-7 AND DAY 15-21)
     Route: 048
     Dates: start: 20121212

REACTIONS (3)
  - Sepsis [Recovered/Resolved]
  - Hypoglycaemia [Recovered/Resolved]
  - Acute kidney injury [Recovered/Resolved]

NARRATIVE: CASE EVENT DATE: 20121228
